FAERS Safety Report 23079481 (Version 1)
Quarter: 2023Q4

REPORT INFORMATION
  Report Type: Spontaneous
  Country: US (occurrence: None)
  Receive Date: 20231017
  Receipt Date: 20231017
  Transmission Date: 20240110
  Serious: Yes (Hospitalization)
  Sender: FDA-Public Use
  Company Number: None

PATIENT
  Sex: Female

DRUGS (3)
  1. CREON [Suspect]
     Active Substance: PANCRELIPASE AMYLASE\PANCRELIPASE LIPASE\PANCRELIPASE PROTEASE
     Indication: Cystic fibrosis
     Dosage: OTHER QUANTITY : 24000-76000 UNIT;?FREQUENCY : AS DIRECTED;?
     Route: 048
     Dates: start: 20211102
  2. ALBUTEROL AER HFA [Concomitant]
  3. ALBUTEROL NEB [Concomitant]

REACTIONS (1)
  - Sinus operation [None]
